FAERS Safety Report 23916275 (Version 1)
Quarter: 2024Q2

REPORT INFORMATION
  Report Type: Spontaneous
  Country: US (occurrence: None)
  Receive Date: 20240528
  Receipt Date: 20240528
  Transmission Date: 20240716
  Serious: No
  Sender: FDA-Public Use
  Company Number: None

PATIENT
  Age: 39 Year
  Sex: Male
  Weight: 72 kg

DRUGS (1)
  1. INVEGA SUSTENNA [Suspect]
     Active Substance: PALIPERIDONE PALMITATE
     Indication: Schizoaffective disorder
     Dosage: FREQUENCY : MONTHLY;?
     Route: 030

REACTIONS (5)
  - Brain fog [None]
  - Constipation [None]
  - Haemorrhoids [None]
  - Social problem [None]
  - Faecal volume increased [None]
